FAERS Safety Report 9121015 (Version 1)
Quarter: 2013Q1

REPORT INFORMATION
  Report Type: Report from Study
  Country: BR (occurrence: BR)
  Receive Date: 20130226
  Receipt Date: 20130226
  Transmission Date: 20140127
  Serious: Yes (Death, Hospitalization, Other)
  Sender: FDA-Public Use
  Company Number: BR-BAYER-2013-020913

PATIENT
  Sex: Female

DRUGS (2)
  1. NEXAVAR [Suspect]
     Indication: HEPATIC CANCER
     Dosage: 1 DF, BID
     Route: 048
     Dates: start: 201107
  2. NEXAVAR [Suspect]
     Indication: HEPATIC CANCER
     Dosage: UNK
     Dates: end: 201210

REACTIONS (6)
  - Multi-organ failure [Fatal]
  - Immunodeficiency [None]
  - Kidney infection [None]
  - Infection [None]
  - Diarrhoea [None]
  - Vomiting [None]
